FAERS Safety Report 10444271 (Version 2)
Quarter: 2014Q3

REPORT INFORMATION
  Report Type: Spontaneous
  Country: IE (occurrence: IE)
  Receive Date: 20140910
  Receipt Date: 20140910
  Transmission Date: 20150326
  Serious: Yes (Hospitalization)
  Sender: FDA-Public Use
  Company Number: PHFR2013IE004373

PATIENT
  Age: 39 Year
  Sex: Female

DRUGS (3)
  1. CLOZARIL [Suspect]
     Active Substance: CLOZAPINE
     Indication: SCHIZOPHRENIA
     Dosage: 300 MG,
     Dates: start: 20100707, end: 20130605
  2. ATENOLOL. [Concomitant]
     Active Substance: ATENOLOL
     Dosage: 25 MG, QD (ONCE DAY)
  3. CLOZARIL [Suspect]
     Active Substance: CLOZAPINE

REACTIONS (1)
  - Schizophrenia [Recovering/Resolving]

NARRATIVE: CASE EVENT DATE: 201306
